FAERS Safety Report 15012959 (Version 1)
Quarter: 2018Q2

REPORT INFORMATION
  Report Type: Spontaneous
  Country: US (occurrence: US)
  Receive Date: 20180614
  Receipt Date: 20180614
  Transmission Date: 20180711
  Serious: Yes (Hospitalization, Other)
  Sender: FDA-Public Use
  Company Number: US-OTSUKA-2018_015357

PATIENT
  Sex: Female

DRUGS (2)
  1. ABILIFY [Suspect]
     Active Substance: ARIPIPRAZOLE
     Indication: BIPOLAR DISORDER
     Dosage: 30 MG, QD
     Route: 065
     Dates: start: 201012
  2. ABILIFY [Suspect]
     Active Substance: ARIPIPRAZOLE
     Dosage: 40 MG, QD
     Route: 065
     Dates: end: 201510

REACTIONS (9)
  - Suicidal ideation [Recovered/Resolved]
  - Depression [Unknown]
  - Compulsive shopping [Recovered/Resolved]
  - Suicide attempt [Recovered/Resolved]
  - Mental disorder [Unknown]
  - Gambling disorder [Recovered/Resolved]
  - Eating disorder [Recovered/Resolved]
  - Economic problem [Unknown]
  - Bankruptcy [Unknown]
